FAERS Safety Report 5351087-3 (Version None)
Quarter: 2007Q2

REPORT INFORMATION
  Report Type: 
  Country: None (occurrence: None)
  Receive Date: 20070608
  Receipt Date: 20070531
  Transmission Date: 20071010
  Serious: Yes (Death, Hospitalization, Other)
  Sender: FDA-Public Use
  Company Number: US-PFIZER INC-2006134317

PATIENT
  Sex: Female

DRUGS (3)
  1. CELEBREX [Suspect]
     Indication: RHEUMATOID ARTHRITIS
     Dates: start: 19990724, end: 20000401
  2. CELEBREX [Suspect]
     Indication: PAIN MANAGEMENT
  3. VIOXX [Suspect]
     Dates: start: 20000301, end: 20000901

REACTIONS (3)
  - DEPRESSION [None]
  - ISCHAEMIC STROKE [None]
  - UROSEPSIS [None]
